FAERS Safety Report 24184306 (Version 2)
Quarter: 2024Q4

REPORT INFORMATION
  Report Type: Spontaneous
  Country: US (occurrence: US)
  Receive Date: 20240807
  Receipt Date: 20241014
  Transmission Date: 20250115
  Serious: No
  Sender: SANOFI AVENTIS
  Company Number: US-SA-SAC20240801000077

PATIENT
  Age: 62 Year
  Sex: Male

DRUGS (1)
  1. DUPIXENT [Suspect]
     Active Substance: DUPILUMAB
     Indication: Dermatitis atopic
     Dosage: 300 MG, QOW
     Route: 058

REACTIONS (10)
  - Dry skin [Not Recovered/Not Resolved]
  - Erythema of eyelid [Unknown]
  - Swelling of eyelid [Unknown]
  - Pruritus [Not Recovered/Not Resolved]
  - Ocular hyperaemia [Recovered/Resolved]
  - Pruritus [Unknown]
  - Skin exfoliation [Unknown]
  - Dry eye [Recovered/Resolved]
  - Eye pruritus [Recovered/Resolved]
  - Eye irritation [Recovered/Resolved]

NARRATIVE: CASE EVENT DATE: 20240901
